FAERS Safety Report 7939341-X (Version None)
Quarter: 2011Q4

REPORT INFORMATION
  Report Type: 
  Country: None (occurrence: None)
  Receive Date: 20111125
  Receipt Date: 20111114
  Transmission Date: 20120403
  Serious: Yes (Death, Hospitalization)
  Sender: FDA-Public Use
  Company Number: US-BAYER-201039295NA

PATIENT
  Age: 27 Year
  Sex: Female
  Weight: 159.18 kg

DRUGS (13)
  1. YASMIN [Suspect]
     Dosage: UNK
     Route: 048
     Dates: start: 20050422, end: 20050520
  2. HYDROCHLOROTHIAZIDE [Concomitant]
     Indication: BLOOD PRESSURE ABNORMAL
     Dosage: UNK
     Dates: start: 20040101, end: 20050101
  3. PHENERGAN [Concomitant]
     Indication: VOMITING
     Dosage: 12.5 MG, QID
     Route: 054
     Dates: start: 20050410
  4. TRAMADOL HCL [Concomitant]
     Indication: PAIN
     Dosage: 50 MG, PRN
     Route: 048
     Dates: start: 20050428
  5. PHENERGAN [Concomitant]
     Indication: NAUSEA
     Dosage: 25 MG, QID
     Route: 048
     Dates: start: 20050410
  6. ZIAC [Concomitant]
     Dosage: UNK UNK, CONT
  7. PHENERGAN [Concomitant]
     Dosage: 12.5 MG, UNK
     Route: 042
     Dates: start: 20050410
  8. ACETAMINOPHEN [Concomitant]
     Indication: HEADACHE
  9. TYLENOL W/ CODEINE NO. 3 [Concomitant]
     Indication: PAIN
     Dosage: UNK UNK, PRN
     Route: 048
     Dates: start: 20050410
  10. BENTYL [Concomitant]
     Dosage: 10 MG, UNK
     Route: 030
     Dates: start: 20050410
  11. SKELAXIN [Concomitant]
     Indication: PAIN
  12. BENTYL [Concomitant]
     Indication: PAIN
     Dosage: 10 MG, PRN
     Route: 048
     Dates: start: 20050410
  13. SKELAXIN [Concomitant]
     Indication: MUSCLE SPASMS
     Dosage: 800 MG, BID
     Route: 048
     Dates: start: 20050428

REACTIONS (4)
  - DEEP VEIN THROMBOSIS [None]
  - PHLEBITIS [None]
  - INTRACARDIAC THROMBUS [None]
  - PULMONARY THROMBOSIS [None]
